FAERS Safety Report 4321996-2 (Version None)
Quarter: 2004Q1

REPORT INFORMATION
  Report Type: 
  Country: None (occurrence: None)
  Receive Date: 20040319
  Receipt Date: 20040218
  Transmission Date: 20041129
  Serious: No
  Sender: FDA-Public Use
  Company Number: 200401175

PATIENT
  Age: 48 Year
  Sex: Male

DRUGS (1)
  1. LUMIGAN [Suspect]
     Indication: INTRAOCULAR PRESSURE INCREASED
     Dosage: DROP
     Route: 047

REACTIONS (3)
  - EYE IRRITATION [None]
  - EYE REDNESS [None]
  - KERATOCONJUNCTIVITIS SICCA [None]
